FAERS Safety Report 15505863 (Version 4)
Quarter: 2019Q2

REPORT INFORMATION
  Report Type: Spontaneous
  Country: US (occurrence: US)
  Receive Date: 20181016
  Receipt Date: 20190523
  Transmission Date: 20190711
  Serious: No
  Sender: FDA-Public Use
  Company Number: US-PFIZER INC-2018358013

PATIENT
  Age: 71 Year
  Sex: Male
  Weight: 74.84 kg

DRUGS (5)
  1. LYRICA [Suspect]
     Active Substance: PREGABALIN
     Dosage: 50 MG, 3X/DAY
  2. LYRICA [Suspect]
     Active Substance: PREGABALIN
     Indication: SPINAL OSTEOARTHRITIS
     Dosage: 25 MG, 3X/DAY
     Route: 048
     Dates: start: 201804, end: 2018
  3. LYRICA [Suspect]
     Active Substance: PREGABALIN
     Indication: LIGAMENT SPRAIN
     Dosage: 50 MG, 3X/DAY
     Route: 048
     Dates: start: 2018
  4. LYRICA [Suspect]
     Active Substance: PREGABALIN
     Dosage: 3 DF, DAILY
  5. LYRICA [Suspect]
     Active Substance: PREGABALIN
     Dosage: UNK, 3X/DAY

REACTIONS (3)
  - Product dispensing error [Unknown]
  - Drug effective for unapproved indication [Unknown]
  - Off label use [Unknown]
